FAERS Safety Report 5026070-8 (Version None)
Quarter: 2006Q2

REPORT INFORMATION
  Report Type: 
  Country: None (occurrence: None)
  Receive Date: 20060612
  Receipt Date: 20060612
  Transmission Date: 20061013
  Serious: Yes (Hospitalization)
  Sender: FDA-Public Use
  Company Number: None

PATIENT
  Sex: Male

DRUGS (2)
  1. DAPTOMYCIN [Suspect]
     Indication: ARTHRITIS BACTERIAL
  2. DAPTOMYCIN [Suspect]
     Indication: STAPHYLOCOCCAL SEPSIS

REACTIONS (4)
  - ALVEOLITIS ALLERGIC [None]
  - COUGH [None]
  - DRUG TOXICITY [None]
  - DYSPNOEA [None]
